FAERS Safety Report 16134269 (Version 1)
Quarter: 2019Q1

REPORT INFORMATION
  Report Type: Spontaneous
  Country: PL (occurrence: PL)
  Receive Date: 20190329
  Receipt Date: 20190329
  Transmission Date: 20190418
  Serious: Yes (Hospitalization)
  Sender: FDA-Public Use
  Company Number: PL-JNJFOC-20190328906

PATIENT
  Age: 80 Year
  Sex: Male

DRUGS (7)
  1. PARNAPARIN [Concomitant]
     Active Substance: PARNAPARIN
     Indication: PROSTATE CANCER METASTATIC
     Route: 065
  2. ENOXAPARIN [Concomitant]
     Active Substance: ENOXAPARIN
     Indication: PROSTATE CANCER METASTATIC
     Route: 065
  3. ACENOCUMAROL [Concomitant]
     Active Substance: ACENOCOUMAROL
     Indication: PROSTATE CANCER METASTATIC
     Route: 065
  4. PREDNISONE. [Suspect]
     Active Substance: PREDNISONE
     Indication: PROSTATE CANCER METASTATIC
     Route: 065
  5. DALTEPARIN [Concomitant]
     Active Substance: DALTEPARIN
     Indication: PROSTATE CANCER METASTATIC
     Route: 065
  6. ZYTIGA [Suspect]
     Active Substance: ABIRATERONE ACETATE
     Indication: PROSTATE CANCER METASTATIC
     Route: 048
     Dates: start: 201801
  7. CERTOPARIN SODIUM [Concomitant]
     Active Substance: CERTOPARIN SODIUM
     Route: 065

REACTIONS (2)
  - Contusion [Unknown]
  - Syncope [Unknown]

NARRATIVE: CASE EVENT DATE: 201809
